FAERS Safety Report 21406086 (Version 2)
Quarter: 2022Q4

REPORT INFORMATION
  Report Type: Report from Study
  Country: FI (occurrence: FI)
  Receive Date: 20221004
  Receipt Date: 20221206
  Transmission Date: 20230113
  Serious: Yes (Life-Threatening, Hospitalization, Other)
  Sender: FDA-Public Use
  Company Number: FI-CELLTRION INC.-2022FI015830

PATIENT

DRUGS (9)
  1. RITUXIMAB [Suspect]
     Active Substance: RITUXIMAB
     Indication: Follicular lymphoma
     Dosage: 600 MG, (WEEKLY FOR CYCLE 1 AND THEN DAY 1 FOR CYCLES 2 TO 5)
     Route: 042
     Dates: start: 20220422
  2. RITUXIMAB [Suspect]
     Active Substance: RITUXIMAB
     Dosage: 600 MG, (WEEKLY FOR CYCLE 1 AND THEN DAY 1 FOR CYCLES 2 TO 5); PRIOR TO SERIOUS ADVERSE EVENTS (SAES
     Route: 042
     Dates: start: 20220811
  3. RITUXIMAB [Suspect]
     Active Substance: RITUXIMAB
     Dosage: 600 MG, (WEEKLY FOR CYCLE 1 AND THEN DAY 1 FOR CYCLES 2 TO 5)
     Route: 042
  4. TAFASITAMAB [Suspect]
     Active Substance: TAFASITAMAB
     Indication: Follicular lymphoma
     Dosage: 680 MG, (WEEKLY FOR CYCLES 1 TO 3 AND DAYS 1, 15 FOR CYCLES 4 TO 12)
     Route: 042
     Dates: start: 20220421
  5. TAFASITAMAB [Suspect]
     Active Substance: TAFASITAMAB
     Dosage: 680 MG, (WEEKLY FOR CYCLES 1 TO 3 AND DAYS 1, 15 FOR CYCLES 4 TO 12)
     Route: 042
     Dates: start: 20220825
  6. TAFASITAMAB [Suspect]
     Active Substance: TAFASITAMAB
     Dosage: 680 MG, (WEEKLY FOR CYCLES 1 TO 3 AND DAYS 1, 15 FOR CYCLES 4 TO 12)
     Route: 042
  7. LENALIDOMIDE [Suspect]
     Active Substance: LENALIDOMIDE
     Indication: Follicular lymphoma
     Dosage: 20 MG
     Route: 048
     Dates: start: 20220421
  8. LENALIDOMIDE [Suspect]
     Active Substance: LENALIDOMIDE
     Dosage: 20 MG
     Route: 048
     Dates: start: 20220831
  9. LENALIDOMIDE [Suspect]
     Active Substance: LENALIDOMIDE
     Dosage: 20 MG
     Route: 048
     Dates: start: 20220901

REACTIONS (5)
  - Anal ulcer [Recovering/Resolving]
  - Pseudomonal sepsis [Unknown]
  - Neutropenic infection [Recovering/Resolving]
  - Norovirus infection [Recovering/Resolving]
  - Anal fungal infection [Unknown]

NARRATIVE: CASE EVENT DATE: 20220901
